FAERS Safety Report 26218760 (Version 1)
Quarter: 2025Q4

REPORT INFORMATION
  Report Type: Report from Study
  Country: US (occurrence: US)
  Receive Date: 20251231
  Receipt Date: 20251231
  Transmission Date: 20260118
  Serious: No
  Sender: PFIZER
  Company Number: US-PFIZER INC-202500244585

PATIENT
  Age: 14 Year
  Sex: Male
  Weight: 41.723 kg

DRUGS (1)
  1. GENOTROPIN [Suspect]
     Active Substance: SOMATROPIN
     Indication: Growth hormone deficiency
     Dosage: 1.2 MG, DAILY
     Dates: start: 202501

REACTIONS (2)
  - Device material issue [Unknown]
  - Device use error [Unknown]

NARRATIVE: CASE EVENT DATE: 20251101
